FAERS Safety Report 8133787-5 (Version None)
Quarter: 2012Q1

REPORT INFORMATION
  Report Type: 
  Country: None (occurrence: None)
  Receive Date: 20120213
  Receipt Date: 20120213
  Transmission Date: 20120608
  Serious: Yes (Hospitalization)
  Sender: FDA-Public Use
  Company Number: None

PATIENT
  Sex: Female
  Weight: 49.895 kg

DRUGS (1)
  1. PROMETRIUM [Suspect]
     Indication: PREMATURE MENOPAUSE
     Dosage: 1-2
     Dates: start: 19850101, end: 20120229

REACTIONS (6)
  - FEELING ABNORMAL [None]
  - VISUAL IMPAIRMENT [None]
  - ASTHENIA [None]
  - MALAISE [None]
  - LOSS OF CONSCIOUSNESS [None]
  - HEADACHE [None]
